FAERS Safety Report 6728004-4 (Version None)
Quarter: 2010Q2

REPORT INFORMATION
  Report Type: 
  Country: None (occurrence: None)
  Receive Date: 20100517
  Receipt Date: 20100405
  Transmission Date: 20101027
  Serious: Yes (Other)
  Sender: FDA-Public Use
  Company Number: US-BAXTER-2010BH000145

PATIENT
  Age: 32 Year
  Sex: Male
  Weight: 134 kg

DRUGS (119)
  1. HEPARIN SODIUM INJECTION [Suspect]
     Indication: INTRAVENOUS CATHETER MANAGEMENT
     Route: 042
     Dates: start: 20080127, end: 20080128
  2. HEPARIN SODIUM INJECTION [Suspect]
     Indication: THROMBOSIS PROPHYLAXIS
     Route: 042
     Dates: start: 20080127, end: 20080128
  3. HEPARIN SODIUM INJECTION [Suspect]
     Route: 058
     Dates: start: 20080127, end: 20080220
  4. HEPARIN SODIUM INJECTION [Suspect]
     Route: 058
     Dates: start: 20080127, end: 20080220
  5. HEPARIN SODIUM INJECTION [Suspect]
     Route: 042
     Dates: start: 20080114, end: 20080122
  6. HEPARIN SODIUM INJECTION [Suspect]
     Route: 042
     Dates: start: 20080114, end: 20080122
  7. HEPARIN SODIUM INJECTION [Suspect]
     Route: 042
     Dates: start: 20080115, end: 20080115
  8. HEPARIN SODIUM INJECTION [Suspect]
     Route: 042
     Dates: start: 20080115, end: 20080115
  9. HEPARIN SODIUM INJECTION [Suspect]
     Route: 042
     Dates: start: 20080115, end: 20080115
  10. HEPARIN SODIUM INJECTION [Suspect]
     Route: 042
     Dates: start: 20080115, end: 20080115
  11. HEPARIN SODIUM INJECTION [Suspect]
     Route: 042
     Dates: start: 20080115, end: 20080115
  12. HEPARIN SODIUM INJECTION [Suspect]
     Route: 042
     Dates: start: 20080115, end: 20080115
  13. HEPARIN SODIUM INJECTION [Suspect]
     Route: 042
     Dates: start: 20080115, end: 20080115
  14. HEPARIN SODIUM INJECTION [Suspect]
     Route: 042
     Dates: start: 20080115, end: 20080115
  15. HEPARIN SODIUM INJECTION [Suspect]
     Route: 042
     Dates: start: 20080115, end: 20080115
  16. HEPARIN SODIUM INJECTION [Suspect]
     Route: 042
     Dates: start: 20080115, end: 20080115
  17. HEPARIN SODIUM INJECTION [Suspect]
     Route: 042
     Dates: start: 20080115, end: 20080115
  18. HEPARIN SODIUM INJECTION [Suspect]
     Route: 042
     Dates: start: 20080115, end: 20080115
  19. HEPARIN SODIUM INJECTION [Suspect]
     Route: 042
     Dates: start: 20080115, end: 20080115
  20. HEPARIN SODIUM INJECTION [Suspect]
     Route: 042
     Dates: start: 20080115, end: 20080115
  21. HEPARIN SODIUM INJECTION [Suspect]
     Route: 042
     Dates: start: 20080115, end: 20080115
  22. HEPARIN SODIUM INJECTION [Suspect]
     Route: 042
     Dates: start: 20080115, end: 20080115
  23. HEPARIN SODIUM INJECTION [Suspect]
     Route: 042
     Dates: start: 20080115, end: 20080115
  24. HEPARIN SODIUM INJECTION [Suspect]
     Route: 042
     Dates: start: 20080115, end: 20080115
  25. HEPARIN SODIUM INJECTION [Suspect]
     Route: 042
     Dates: start: 20080127, end: 20080127
  26. HEPARIN SODIUM INJECTION [Suspect]
     Route: 042
     Dates: start: 20080127, end: 20080127
  27. HEPARIN SODIUM INJECTION [Suspect]
     Route: 042
     Dates: start: 20080206, end: 20080206
  28. HEPARIN SODIUM INJECTION [Suspect]
     Route: 042
     Dates: start: 20080206, end: 20080206
  29. HEPARIN SODIUM INJECTION [Suspect]
     Route: 042
     Dates: start: 20080211, end: 20080211
  30. HEPARIN SODIUM INJECTION [Suspect]
     Route: 042
     Dates: start: 20080211, end: 20080211
  31. HEPARIN SODIUM INJECTION [Suspect]
     Route: 042
     Dates: start: 20080127, end: 20080127
  32. HEPARIN SODIUM INJECTION [Suspect]
     Route: 042
     Dates: start: 20080127, end: 20080127
  33. HEPARIN SODIUM INJECTION [Suspect]
     Route: 042
     Dates: start: 20080127, end: 20080127
  34. HEPARIN SODIUM INJECTION [Suspect]
     Route: 042
     Dates: start: 20080127, end: 20080127
  35. HEPARIN SODIUM INJECTION [Suspect]
     Route: 042
     Dates: start: 20080127, end: 20080127
  36. HEPARIN SODIUM INJECTION [Suspect]
     Route: 042
     Dates: start: 20080127, end: 20080127
  37. HEPARIN SODIUM INJECTION [Suspect]
     Route: 042
     Dates: start: 20080127, end: 20080127
  38. HEPARIN SODIUM INJECTION [Suspect]
     Route: 042
     Dates: start: 20080127, end: 20080127
  39. HEPARIN SODIUM INJECTION [Suspect]
     Route: 042
     Dates: start: 20080127, end: 20080127
  40. HEPARIN SODIUM INJECTION [Suspect]
     Route: 042
     Dates: start: 20080127, end: 20080127
  41. HEPARIN SODIUM INJECTION [Suspect]
     Route: 042
     Dates: start: 20080127, end: 20080127
  42. HEPARIN SODIUM INJECTION [Suspect]
     Route: 042
     Dates: start: 20080127, end: 20080127
  43. HEPARIN SODIUM INJECTION [Suspect]
     Route: 042
     Dates: start: 20080127, end: 20080127
  44. HEPARIN SODIUM INJECTION [Suspect]
     Route: 042
     Dates: start: 20080127, end: 20080127
  45. HEPARIN SODIUM INJECTION [Suspect]
     Route: 042
     Dates: start: 20080127, end: 20080127
  46. HEPARIN SODIUM INJECTION [Suspect]
     Route: 042
     Dates: start: 20080127, end: 20080127
  47. HEPARIN SODIUM INJECTION [Suspect]
     Route: 042
     Dates: start: 20080206, end: 20080206
  48. HEPARIN SODIUM INJECTION [Suspect]
     Route: 042
     Dates: start: 20080206, end: 20080206
  49. HEPARIN SODIUM INJECTION [Suspect]
     Route: 042
     Dates: start: 20080206, end: 20080206
  50. HEPARIN SODIUM INJECTION [Suspect]
     Route: 042
     Dates: start: 20080206, end: 20080206
  51. HEPARIN SODIUM INJECTION [Suspect]
     Route: 042
     Dates: start: 20080206, end: 20080206
  52. HEPARIN SODIUM INJECTION [Suspect]
     Route: 042
     Dates: start: 20080206, end: 20080206
  53. HEPARIN SODIUM INJECTION [Suspect]
     Route: 042
     Dates: start: 20080206, end: 20080206
  54. HEPARIN SODIUM INJECTION [Suspect]
     Route: 042
     Dates: start: 20080206, end: 20080206
  55. HEPARIN SODIUM INJECTION [Suspect]
     Route: 042
     Dates: start: 20080206, end: 20080206
  56. HEPARIN SODIUM INJECTION [Suspect]
     Route: 042
     Dates: start: 20080206, end: 20080206
  57. HEPARIN SODIUM INJECTION [Suspect]
     Route: 042
     Dates: start: 20080206, end: 20080206
  58. HEPARIN SODIUM INJECTION [Suspect]
     Route: 042
     Dates: start: 20080206, end: 20080206
  59. HEPARIN SODIUM INJECTION [Suspect]
     Route: 042
     Dates: start: 20080206, end: 20080206
  60. HEPARIN SODIUM INJECTION [Suspect]
     Route: 042
     Dates: start: 20080206, end: 20080206
  61. HEPARIN SODIUM INJECTION [Suspect]
     Route: 042
     Dates: start: 20080206, end: 20080206
  62. HEPARIN SODIUM INJECTION [Suspect]
     Route: 042
     Dates: start: 20080206, end: 20080206
  63. HEPARIN SODIUM INJECTION [Suspect]
     Route: 042
     Dates: start: 20080211, end: 20080211
  64. HEPARIN SODIUM INJECTION [Suspect]
     Route: 042
     Dates: start: 20080211, end: 20080211
  65. HEPARIN SODIUM INJECTION [Suspect]
     Route: 042
     Dates: start: 20080211, end: 20080211
  66. HEPARIN SODIUM INJECTION [Suspect]
     Route: 042
     Dates: start: 20080211, end: 20080211
  67. HEPARIN SODIUM INJECTION [Suspect]
     Route: 042
     Dates: start: 20080211, end: 20080211
  68. HEPARIN SODIUM INJECTION [Suspect]
     Route: 042
     Dates: start: 20080211, end: 20080211
  69. HEPARIN SODIUM INJECTION [Suspect]
     Route: 042
     Dates: start: 20080211, end: 20080211
  70. HEPARIN SODIUM INJECTION [Suspect]
     Route: 042
     Dates: start: 20080211, end: 20080211
  71. HEPARIN SODIUM INJECTION [Suspect]
     Route: 042
     Dates: start: 20080211, end: 20080211
  72. HEPARIN SODIUM INJECTION [Suspect]
     Route: 042
     Dates: start: 20080211, end: 20080211
  73. HEPARIN SODIUM INJECTION [Suspect]
     Route: 042
     Dates: start: 20080211, end: 20080211
  74. HEPARIN SODIUM INJECTION [Suspect]
     Route: 042
     Dates: start: 20080211, end: 20080211
  75. HEPARIN SODIUM INJECTION [Suspect]
     Route: 042
     Dates: start: 20080211, end: 20080211
  76. HEPARIN SODIUM INJECTION [Suspect]
     Route: 042
     Dates: start: 20080211, end: 20080211
  77. HEPARIN SODIUM INJECTION [Suspect]
     Route: 042
     Dates: start: 20080211, end: 20080211
  78. HEPARIN SODIUM INJECTION [Suspect]
     Route: 042
     Dates: start: 20080211, end: 20080211
  79. HEPARIN SODIUM INJECTION [Suspect]
     Route: 042
     Dates: start: 20080122, end: 20080126
  80. HEPARIN SODIUM INJECTION [Suspect]
     Route: 042
     Dates: start: 20080122, end: 20080126
  81. INDOMETHACIN [Concomitant]
     Indication: DRUG USE FOR UNKNOWN INDICATION
     Route: 065
  82. POTASSIUM CHLORIDE [Concomitant]
     Indication: DRUG USE FOR UNKNOWN INDICATION
     Route: 065
  83. PREDNISONE [Concomitant]
     Indication: DRUG USE FOR UNKNOWN INDICATION
     Route: 065
  84. AMITRIPTYLINE [Concomitant]
     Indication: DRUG USE FOR UNKNOWN INDICATION
     Route: 065
  85. ADVAIR DISKUS 100/50 [Concomitant]
     Indication: DRUG USE FOR UNKNOWN INDICATION
     Route: 065
  86. LEXAPRO [Concomitant]
     Indication: DRUG USE FOR UNKNOWN INDICATION
     Route: 065
  87. TIZANIDINE HCL [Concomitant]
     Indication: DRUG USE FOR UNKNOWN INDICATION
     Route: 065
  88. VANCOMYCIN [Concomitant]
     Indication: DRUG USE FOR UNKNOWN INDICATION
     Route: 065
  89. ZOSYN [Concomitant]
     Indication: DRUG USE FOR UNKNOWN INDICATION
     Route: 065
  90. DOCUSATE SODIUM [Concomitant]
     Indication: DRUG USE FOR UNKNOWN INDICATION
     Route: 065
  91. HYDROCODONE [Concomitant]
     Indication: DRUG USE FOR UNKNOWN INDICATION
     Route: 065
  92. ZOFRAN [Concomitant]
     Indication: DRUG USE FOR UNKNOWN INDICATION
     Route: 065
  93. TYLENOL (CAPLET) [Concomitant]
     Indication: DRUG USE FOR UNKNOWN INDICATION
     Route: 065
  94. AMBIEN [Concomitant]
     Indication: DRUG USE FOR UNKNOWN INDICATION
     Route: 065
  95. REGLAN [Concomitant]
     Indication: DRUG USE FOR UNKNOWN INDICATION
     Route: 042
  96. CELEXA [Concomitant]
     Indication: DRUG USE FOR UNKNOWN INDICATION
     Route: 065
  97. FENTANYL [Concomitant]
     Indication: DRUG USE FOR UNKNOWN INDICATION
     Route: 065
  98. IPRATROPIUM [Concomitant]
     Indication: DRUG USE FOR UNKNOWN INDICATION
     Route: 055
  99. FERRLECIT                               /USA/ [Concomitant]
     Indication: DRUG USE FOR UNKNOWN INDICATION
     Route: 042
  100. PHENERGAN [Concomitant]
     Indication: DRUG USE FOR UNKNOWN INDICATION
     Route: 042
  101. INSULIN [Concomitant]
     Indication: DRUG USE FOR UNKNOWN INDICATION
     Route: 065
  102. PULMICORT [Concomitant]
     Indication: DRUG USE FOR UNKNOWN INDICATION
     Route: 065
  103. DUONEB [Concomitant]
     Indication: DRUG USE FOR UNKNOWN INDICATION
     Route: 065
  104. XANAX [Concomitant]
     Indication: DRUG USE FOR UNKNOWN INDICATION
     Route: 065
  105. PRILOSEC [Concomitant]
     Indication: DRUG USE FOR UNKNOWN INDICATION
     Route: 065
  106. DURAGESIC-100 [Concomitant]
     Indication: DRUG USE FOR UNKNOWN INDICATION
     Route: 065
  107. NORCO [Concomitant]
     Indication: DRUG USE FOR UNKNOWN INDICATION
     Route: 065
  108. PROTONIX [Concomitant]
     Indication: DRUG USE FOR UNKNOWN INDICATION
     Route: 065
  109. DIPHENHYDRAMINE [Concomitant]
     Indication: DRUG USE FOR UNKNOWN INDICATION
     Route: 065
  110. CYCLOBENZAPRINE [Concomitant]
     Indication: DRUG USE FOR UNKNOWN INDICATION
     Route: 065
  111. DILAUDID [Concomitant]
     Indication: DRUG USE FOR UNKNOWN INDICATION
     Route: 065
  112. DARVOCET-N 100 [Concomitant]
     Indication: DRUG USE FOR UNKNOWN INDICATION
     Route: 065
  113. BENTYL [Concomitant]
     Indication: DRUG USE FOR UNKNOWN INDICATION
     Route: 065
  114. LASIX [Concomitant]
     Indication: DRUG USE FOR UNKNOWN INDICATION
     Route: 065
  115. COREG [Concomitant]
     Indication: DRUG USE FOR UNKNOWN INDICATION
     Route: 065
  116. ALBUTEROL [Concomitant]
     Indication: DRUG USE FOR UNKNOWN INDICATION
     Route: 065
  117. PREDNISONE [Concomitant]
     Route: 065
  118. PREDNISONE [Concomitant]
     Route: 065
  119. PREDNISONE [Concomitant]
     Route: 065

REACTIONS (47)
  - ANXIETY [None]
  - ASTHENIA [None]
  - ATRIAL FIBRILLATION [None]
  - BLISTER [None]
  - CARDIAC FAILURE CONGESTIVE [None]
  - CATHETER SITE HAEMORRHAGE [None]
  - CHEST DISCOMFORT [None]
  - CHILLS [None]
  - COLITIS [None]
  - CONSTIPATION [None]
  - EAR DISORDER [None]
  - EPISTAXIS [None]
  - GASTROINTESTINAL HAEMORRHAGE [None]
  - HAEMORRHAGIC ANAEMIA [None]
  - HEPATIC FAILURE [None]
  - HISTIOCYTOSIS HAEMATOPHAGIC [None]
  - HYPERTENSION [None]
  - HYPOGAMMAGLOBULINAEMIA [None]
  - HYPOKALAEMIA [None]
  - HYPOTENSION [None]
  - IMMUNOSUPPRESSION [None]
  - INCONTINENCE [None]
  - INSOMNIA [None]
  - INTESTINAL FUNCTIONAL DISORDER [None]
  - LEUKOCYTOSIS [None]
  - MALNUTRITION [None]
  - METABOLIC ENCEPHALOPATHY [None]
  - MOUTH HAEMORRHAGE [None]
  - MULTI-ORGAN FAILURE [None]
  - NAUSEA [None]
  - ORAL CANDIDIASIS [None]
  - OSTEONECROSIS [None]
  - PANCREATIC DISORDER [None]
  - PERICARDITIS [None]
  - POST PROCEDURAL HAEMORRHAGE [None]
  - PULMONARY OEDEMA [None]
  - RASH PRURITIC [None]
  - RENAL FAILURE [None]
  - RESPIRATORY FAILURE [None]
  - SEPSIS [None]
  - SKIN DISORDER [None]
  - SPLENOMEGALY [None]
  - STILL'S DISEASE ADULT ONSET [None]
  - TACHYCARDIA [None]
  - THROMBOCYTOPENIA [None]
  - TREMOR [None]
  - VOMITING [None]
